FAERS Safety Report 14679564 (Version 3)
Quarter: 2018Q2

REPORT INFORMATION
  Report Type: Spontaneous
  Country: LB (occurrence: LB)
  Receive Date: 20180326
  Receipt Date: 20180416
  Transmission Date: 20180711
  Serious: Yes (Hospitalization, Other)
  Sender: FDA-Public Use
  Company Number: LB-NOVOPROD-590541

PATIENT
  Age: 54 Year
  Sex: Male

DRUGS (4)
  1. NOVOEIGHT [Suspect]
     Active Substance: ANTIHEMOPHILIC FACTOR, HUMAN RECOMBINANT
     Indication: FACTOR VIII DEFICIENCY
     Dosage: UNK
     Route: 065
  2. NOVOEIGHT [Suspect]
     Active Substance: ANTIHEMOPHILIC FACTOR, HUMAN RECOMBINANT
     Dosage: TWICE A WEEK 2500 IU FOR 3 WEEKS, THEN 2500 IU EVERY 8 HRS FOR 2-3 DAYS THAN TWICE A WEEK
     Route: 065
  3. NOVOEIGHT [Suspect]
     Active Substance: ANTIHEMOPHILIC FACTOR, HUMAN RECOMBINANT
     Dosage: 3000UI EVERY 8H
     Route: 065
  4. NOVOEIGHT [Suspect]
     Active Substance: ANTIHEMOPHILIC FACTOR, HUMAN RECOMBINANT
     Dosage: 2000 IU
     Route: 065

REACTIONS (8)
  - Patella fracture [Unknown]
  - Anaemia [Unknown]
  - Fall [Unknown]
  - Haemarthrosis [Not Recovered/Not Resolved]
  - Haematoma [Unknown]
  - Anti factor VIII antibody positive [Unknown]
  - Haemorrhage [Unknown]
  - Haematuria [Recovered/Resolved]

NARRATIVE: CASE EVENT DATE: 20180207
